FAERS Safety Report 13231432 (Version 1)
Quarter: 2017Q1

REPORT INFORMATION
  Report Type: Spontaneous
  Country: RU (occurrence: RU)
  Receive Date: 20170214
  Receipt Date: 20170214
  Transmission Date: 20170428
  Serious: Yes (Other)
  Sender: FDA-Public Use
  Company Number: RU-ASTRAZENECA-2017SE15774

PATIENT
  Age: 67 Year
  Sex: Male
  Weight: 90 kg

DRUGS (9)
  1. VEROSPIRON [Concomitant]
     Active Substance: SPIRONOLACTONE
  2. LOSARTAN. [Concomitant]
     Active Substance: LOSARTAN
     Dosage: 160.0MG UNKNOWN
  3. INDAPAMIDE. [Concomitant]
     Active Substance: INDAPAMIDE
     Dosage: 2.5MG UNKNOWN
  4. BETALOC ZOK [Concomitant]
     Active Substance: METOPROLOL SUCCINATE
  5. CRESTOR [Concomitant]
     Active Substance: ROSUVASTATIN CALCIUM
  6. BRILINTA [Suspect]
     Active Substance: TICAGRELOR
     Indication: MYOCARDIAL INFARCTION
     Route: 048
     Dates: start: 20160726, end: 201608
  7. ASPIRIN. [Concomitant]
     Active Substance: ASPIRIN
  8. BRILINTA [Suspect]
     Active Substance: TICAGRELOR
     Indication: MYOCARDIAL INFARCTION
     Route: 048
     Dates: start: 201610
  9. MOXONIDINE [Concomitant]
     Active Substance: MOXONIDINE

REACTIONS (1)
  - Asthma [Recovered/Resolved]

NARRATIVE: CASE EVENT DATE: 201608
